FAERS Safety Report 5210456-2 (Version None)
Quarter: 2007Q1

REPORT INFORMATION
  Report Type: 
  Country: None (occurrence: None)
  Receive Date: 20070116
  Receipt Date: 20070116
  Transmission Date: 20070707
  Serious: No
  Sender: FDA-Public Use
  Company Number: None

PATIENT
  Sex: Male
  Weight: 100 kg

DRUGS (1)
  1. PROTAMINE SULFATE [Suspect]
     Indication: CARDIAC OPERATION
     Dosage: SEE IMAGE
     Dates: start: 20070102

REACTIONS (4)
  - BODY TEMPERATURE DECREASED [None]
  - HYPOTENSION [None]
  - NON-CARDIOGENIC PULMONARY OEDEMA [None]
  - TRANSFUSION-RELATED ACUTE LUNG INJURY [None]
